FAERS Safety Report 8936727 (Version 2)
Quarter: 2014Q1

REPORT INFORMATION
  Report Type: Report from Study
  Country: CH (occurrence: CH)
  Receive Date: 20121130
  Receipt Date: 20140214
  Transmission Date: 20141002
  Serious: Yes (Hospitalization)
  Sender: FDA-Public Use
  Company Number: CH-ROCHE-1158474

PATIENT
  Age: 62 Year
  Sex: Female
  Weight: 48 kg

DRUGS (5)
  1. RIBAVIRIN [Suspect]
     Indication: CHRONIC HEPATITIS C
     Dosage: FREQUENCY-QD.
     Route: 048
     Dates: start: 20121017, end: 20130402
  2. PEG-INTERFERON ALFA 2A [Suspect]
     Indication: CHRONIC HEPATITIS C
     Route: 058
     Dates: start: 20121017, end: 20130327
  3. EPOETIN BETA [Concomitant]
     Indication: ANAEMIA
     Dosage: 10000
     Route: 058
     Dates: start: 20121107, end: 20130327
  4. AMLODIPIN [Concomitant]
     Indication: HYPERTENSION
     Dosage: FREQUENCY-QD
     Route: 048
     Dates: start: 20100102
  5. CANDESARTAN [Concomitant]
     Indication: HYPERTENSION
     Dosage: FREQUENCY-QD
     Route: 048
     Dates: start: 20100102, end: 20121109

REACTIONS (1)
  - Dizziness [Recovered/Resolved]
